FAERS Safety Report 14519844 (Version 1)
Quarter: 2018Q1

REPORT INFORMATION
  Report Type: Spontaneous
  Country: IT (occurrence: IT)
  Receive Date: 20180212
  Receipt Date: 20180212
  Transmission Date: 20180509
  Serious: Yes (Other)
  Sender: FDA-Public Use
  Company Number: IT-PFIZER INC-2017082886

PATIENT
  Age: 19 Year
  Sex: Male

DRUGS (3)
  1. TACHIPIRINA [Concomitant]
     Active Substance: ACETAMINOPHEN
     Dosage: 10 DF, UNK
     Route: 048
  2. TAVOR (LORAZEPAM) [Suspect]
     Active Substance: LORAZEPAM
     Dosage: UNK
     Route: 048
  3. HALDOL [Suspect]
     Active Substance: HALOPERIDOL
     Route: 048

REACTIONS (3)
  - Extrapyramidal disorder [Unknown]
  - Muscle rigidity [Unknown]
  - Staring [Unknown]

NARRATIVE: CASE EVENT DATE: 20161205
